FAERS Safety Report 13062010 (Version 2)
Quarter: 2016Q4

REPORT INFORMATION
  Report Type: Spontaneous
  Country: AU (occurrence: AU)
  Receive Date: 20161226
  Receipt Date: 20161229
  Transmission Date: 20170207
  Serious: Yes (Other)
  Sender: FDA-Public Use
  Company Number: AU-BRISTOL-MYERS SQUIBB COMPANY-BMS-2016-109272

PATIENT
  Age: 80 Year
  Sex: Male

DRUGS (1)
  1. ELIQUIS [Suspect]
     Active Substance: APIXABAN
     Indication: CEREBROVASCULAR ACCIDENT PROPHYLAXIS
     Route: 065

REACTIONS (6)
  - Transurethral prostatectomy [Unknown]
  - Prostatic obstruction [Unknown]
  - Fasciotomy [Unknown]
  - Cerebral infarction [Unknown]
  - Peripheral embolism [Unknown]
  - Thromboembolectomy [Unknown]
